FAERS Safety Report 11130599 (Version 3)
Quarter: 2015Q2

REPORT INFORMATION
  Report Type: Spontaneous
  Country: US (occurrence: US)
  Receive Date: 20150522
  Receipt Date: 20150629
  Transmission Date: 20150821
  Serious: Yes (Other)
  Sender: FDA-Public Use
  Company Number: US-JNJCP-30000283534

PATIENT
  Sex: Female
  Weight: 58 kg

DRUGS (3)
  1. NEUTROGENA HEALTHY SKIN FACE SUNSCREEN SPF 15 [Suspect]
     Active Substance: OCTINOXATE\OXYBENZONE
     Indication: DRY SKIN PROPHYLAXIS
     Dosage: NOT EVEN A DIME SIZE AMOUNT ONCE TOTAL
     Route: 061
  2. CLARINEX [Concomitant]
     Active Substance: DESLORATADINE
     Indication: HYPERSENSITIVITY
     Dosage: ONE PILL DAILY SINCE THIRTEEN YEARS
     Route: 048
  3. SINGULAIR [Concomitant]
     Active Substance: MONTELUKAST SODIUM
     Indication: HYPERSENSITIVITY
     Dosage: ONE PILL DAILY SINCE THIRTEEN YEARS
     Route: 048

REACTIONS (1)
  - Hypersensitivity [Recovered/Resolved]
